FAERS Safety Report 12375248 (Version 2)
Quarter: 2016Q2

REPORT INFORMATION
  Report Type: Report from Study
  Country: CO (occurrence: CO)
  Receive Date: 20160517
  Receipt Date: 20160616
  Transmission Date: 20160815
  Serious: Yes (Hospitalization, Other)
  Sender: FDA-Public Use
  Company Number: PHHY2016CO064827

PATIENT
  Sex: Male
  Weight: 98 kg

DRUGS (1)
  1. REVOLADE [Suspect]
     Active Substance: ELTROMBOPAG
     Indication: IMMUNE THROMBOCYTOPENIC PURPURA
     Dosage: 25 MG, TID
     Route: 048
     Dates: start: 20160407, end: 20160429

REACTIONS (4)
  - Haematemesis [Unknown]
  - Platelet count decreased [Unknown]
  - Drug ineffective [Unknown]
  - Disease recurrence [Unknown]
